FAERS Safety Report 23890857 (Version 1)
Quarter: 2024Q2

REPORT INFORMATION
  Report Type: Spontaneous
  Country: GB (occurrence: GB)
  Receive Date: 20240523
  Receipt Date: 20240523
  Transmission Date: 20240715
  Serious: Yes (Death, Other)
  Sender: FDA-Public Use
  Company Number: GB-002147023-NVSC2024GB108280

PATIENT
  Age: 3 Year

DRUGS (1)
  1. KYMRIAH [Suspect]
     Active Substance: TISAGENLECLEUCEL
     Indication: Product used for unknown indication
     Dosage: UNK, (CAR-T INFUSION)
     Route: 065
     Dates: start: 201905, end: 201905

REACTIONS (6)
  - Meningoencephalitis viral [Fatal]
  - Immune effector cell-associated neurotoxicity syndrome [Unknown]
  - Cytokine release syndrome [Unknown]
  - Seizure [Unknown]
  - Arnold-Chiari malformation [Unknown]
  - Immunoglobulins decreased [Unknown]

NARRATIVE: CASE EVENT DATE: 20200701
